FAERS Safety Report 6120820-5 (Version None)
Quarter: 2009Q1

REPORT INFORMATION
  Report Type: 
  Country: None (occurrence: None)
  Receive Date: 20090312
  Receipt Date: 20090224
  Transmission Date: 20090719
  Serious: Yes (Hospitalization, Other)
  Sender: FDA-Public Use
  Company Number: PAR_02860_2009

PATIENT
  Age: 73 Year
  Sex: Female
  Weight: 68 kg

DRUGS (11)
  1. IBUPROFEN [Suspect]
     Indication: PAIN
     Dosage: (400 MG TID ORAL)
     Route: 048
     Dates: start: 20080605, end: 20080724
  2. DEXAMETHASONE [Suspect]
     Indication: METASTASIS
     Dosage: (4 MG TID ORAL)
     Route: 048
     Dates: start: 20080605
  3. DEXAMETHASONE [Suspect]
     Indication: METASTASES TO CENTRAL NERVOUS SYSTEM
     Dosage: (DF ORAL)
     Route: 048
  4. RAMIPRIL [Concomitant]
  5. PANTOZOL /01263202/ [Concomitant]
  6. NAC /00082801/ [Concomitant]
  7. MIRTAZAPINE [Concomitant]
  8. METOHEXAL /00376902/ [Concomitant]
  9. KREON /00014701/ [Concomitant]
  10. CODEINE SUL TAB [Concomitant]
  11. BRONCHO /00139501/ [Concomitant]

REACTIONS (11)
  - ALANINE AMINOTRANSFERASE INCREASED [None]
  - BLOOD CALCIUM DECREASED [None]
  - BLOOD CREATININE DECREASED [None]
  - BLOOD POTASSIUM DECREASED [None]
  - EROSIVE OESOPHAGITIS [None]
  - GASTRIC ULCER [None]
  - HAEMATEMESIS [None]
  - IMPAIRED HEALING [None]
  - MELAENA [None]
  - PLATELET COUNT DECREASED [None]
  - PROTHROMBIN TIME PROLONGED [None]
